FAERS Safety Report 8031402-2 (Version None)
Quarter: 2012Q1

REPORT INFORMATION
  Report Type: 
  Country: None (occurrence: None)
  Receive Date: 20120109
  Receipt Date: 20120105
  Transmission Date: 20120608
  Serious: Yes (Other)
  Sender: FDA-Public Use
  Company Number: BR-ABBOTT-11P-020-0886127-00

PATIENT
  Sex: Male
  Weight: 84 kg

DRUGS (7)
  1. CARBAMAZEPINE [Concomitant]
     Indication: BIPOLAR DISORDER
     Dosage: 1 TAB AT NIGHT
     Route: 048
  2. QUETIAPINE FUMARATE [Concomitant]
     Indication: BIPOLAR DISORDER
     Dosage: 1 AT NIGHT
  3. BENZATHINE BENZYLPENICILLIN/ BACTERIAL ANTIGENS [Concomitant]
     Indication: BIPOLAR DISORDER
     Route: 048
  4. VENLAFAXINE [Concomitant]
     Indication: BIPOLAR DISORDER
     Dosage: 1 TAB IN AM; 2 TAB Q 12 HRS IN CRISIS
     Route: 048
  5. LORAX [Concomitant]
     Indication: ANXIETY
     Dosage: ONLY DURING CRISIS PERIODS
  6. HUMIRA [Suspect]
     Indication: PSORIATIC ARTHROPATHY
     Route: 058
     Dates: start: 20060901
  7. LITHIUM [Concomitant]
     Indication: BIPOLAR DISORDER
     Route: 048

REACTIONS (7)
  - ARTHRALGIA [None]
  - BIPOLAR DISORDER [None]
  - PAIN IN EXTREMITY [None]
  - BASAL CELL CARCINOMA [None]
  - HYPERKERATOSIS [None]
  - SKIN HAEMORRHAGE [None]
  - INJECTION SITE PAIN [None]
